FAERS Safety Report 7951393-X (Version None)
Quarter: 2011Q4

REPORT INFORMATION
  Report Type: 
  Country: None (occurrence: None)
  Receive Date: 20111201
  Receipt Date: 20111129
  Transmission Date: 20120403
  Serious: Yes (Death)
  Sender: FDA-Public Use
  Company Number: FR-B.I. PHARMACEUTICALS,INC./RIDGEFIELD-2011-FF-01115FF

PATIENT
  Sex: Female
  Weight: 50 kg

DRUGS (4)
  1. ASPIRIN [Concomitant]
     Dosage: 75 MG
     Route: 048
  2. RAMIPRIL [Concomitant]
     Dosage: 1 G
     Route: 048
  3. PRADAXA [Suspect]
     Indication: THROMBOSIS PROPHYLAXIS
     Dosage: 150 MG
     Route: 048
     Dates: start: 20111126, end: 20111127
  4. ACETAMINOPHEN [Concomitant]
     Dosage: 3 G
     Route: 042
     Dates: start: 20111125, end: 20111127

REACTIONS (1)
  - DEATH [None]
